FAERS Safety Report 5491326-1 (Version None)
Quarter: 2007Q4

REPORT INFORMATION
  Report Type: 
  Country: None (occurrence: None)
  Receive Date: 20071019
  Receipt Date: 20071011
  Transmission Date: 20080405
  Serious: Yes (Hospitalization, Congenital Anomaly, Other)
  Sender: FDA-Public Use
  Company Number: GB-BOEHRINGER INGELHEIM PHARMACEUTICALS, INC.-2007-UK-00068UK

PATIENT
  Age: 7 Month
  Sex: Female
  Weight: 5 kg

DRUGS (5)
  1. VIRAMUNE [Suspect]
     Indication: RETROVIRAL INFECTION
     Route: 064
     Dates: start: 20050922, end: 20060509
  2. VIRAMUNE [Suspect]
     Route: 048
  3. COMBIVIR [Suspect]
     Indication: HIV INFECTION
     Route: 064
     Dates: start: 20050901
  4. ZIDOVUDINE [Suspect]
     Indication: PROPHYLAXIS AGAINST HIV INFECTION
     Route: 064
     Dates: start: 20060701, end: 20060801
  5. FERROUS SULFATE TAB [Suspect]

REACTIONS (12)
  - ACIDOSIS [None]
  - AMMONIA INCREASED [None]
  - DEPRESSED LEVEL OF CONSCIOUSNESS [None]
  - EATING DISORDER [None]
  - FOETAL GROWTH RETARDATION [None]
  - GRUNTING [None]
  - LETHARGY [None]
  - METHYLMALONIC ACIDURIA [None]
  - PALLOR [None]
  - RHINITIS [None]
  - UNDERWEIGHT [None]
  - VITAMIN B12 DEFICIENCY [None]
